FAERS Safety Report 14835931 (Version 1)
Quarter: 2018Q2

REPORT INFORMATION
  Report Type: Spontaneous
  Country: FR (occurrence: FR)
  Receive Date: 20180502
  Receipt Date: 20180502
  Transmission Date: 20180711
  Serious: Yes (Other)
  Sender: FDA-Public Use
  Company Number: FR-MERCK KGAA-2046954

PATIENT
  Age: 49 Year
  Sex: Female

DRUGS (1)
  1. NOVOTHYROX [Suspect]
     Active Substance: LEVOTHYROXINE SODIUM
     Indication: POST PROCEDURAL HYPOTHYROIDISM
     Dates: start: 201704, end: 201711

REACTIONS (28)
  - Loss of consciousness [Recovering/Resolving]
  - Sleep disorder [Recovering/Resolving]
  - Dizziness [Recovered/Resolved]
  - Fatigue [Recovering/Resolving]
  - Blood thyroid stimulating hormone increased [Not Recovered/Not Resolved]
  - Headache [Recovering/Resolving]
  - Palpitations [Recovered/Resolved]
  - Weight increased [Recovering/Resolving]
  - Myalgia [Recovering/Resolving]
  - Apathy [Recovering/Resolving]
  - Libido decreased [Recovering/Resolving]
  - Personal relationship issue [Recovering/Resolving]
  - Asthenia [Recovering/Resolving]
  - Mood swings [Recovering/Resolving]
  - Anxiety [Recovering/Resolving]
  - Mean cell haemoglobin concentration increased [Not Recovered/Not Resolved]
  - Monocyte count increased [Not Recovered/Not Resolved]
  - Gait disturbance [Recovering/Resolving]
  - Lethargy [Recovering/Resolving]
  - Blood cholesterol increased [Not Recovered/Not Resolved]
  - Insomnia [Recovering/Resolving]
  - Dyspnoea [Recovering/Resolving]
  - Affect lability [Recovering/Resolving]
  - Crying [Recovering/Resolving]
  - Stress [Recovering/Resolving]
  - Serum ferritin increased [Not Recovered/Not Resolved]
  - Alopecia [Recovering/Resolving]
  - Nausea [Recovering/Resolving]

NARRATIVE: CASE EVENT DATE: 2017
